FAERS Safety Report 5037502-3 (Version None)
Quarter: 2006Q2

REPORT INFORMATION
  Report Type: 
  Country: None (occurrence: None)
  Receive Date: 20060609
  Receipt Date: 20060303
  Transmission Date: 20061013
  Serious: Yes (Death, Life-Threatening, Hospitalization)
  Sender: FDA-Public Use
  Company Number: 036

PATIENT
  Sex: Male
  Weight: 53.5244 kg

DRUGS (5)
  1. FAZACLO ODT [Suspect]
     Indication: SCHIZOPHRENIA, PARANOID TYPE
     Dosage: 550 MG PO DAILY
     Route: 048
     Dates: start: 20060104, end: 20060227
  2. SEROQUEL 250 MG [Concomitant]
  3. KLONOPIN [Concomitant]
  4. REMERON [Concomitant]
  5. DEPAKOTE [Concomitant]

REACTIONS (4)
  - ACUTE RESPIRATORY FAILURE [None]
  - ADRENAL INSUFFICIENCY [None]
  - SEPSIS [None]
  - SEPTIC SHOCK [None]
